FAERS Safety Report 5464211-9 (Version None)
Quarter: 2007Q3

REPORT INFORMATION
  Report Type: 
  Country: None (occurrence: None)
  Receive Date: 20070921
  Receipt Date: 20070912
  Transmission Date: 20080115
  Serious: Yes (Hospitalization)
  Sender: FDA-Public Use
  Company Number: CA-ELI_LILLY_AND_COMPANY-CA200709003054

PATIENT
  Sex: Female

DRUGS (13)
  1. HUMULIN N [Suspect]
     Indication: DIABETES MELLITUS
     Dosage: 38 U, EACH EVENING
  2. HUMULIN R [Suspect]
     Indication: DIABETES MELLITUS
     Dosage: 10 U, OTHER
     Route: 058
     Dates: start: 20030101
  3. AMITRIPTYLINE HCL [Concomitant]
     Indication: DEPRESSION
     Dosage: 50 MG, DAILY (1/D)
     Route: 048
     Dates: start: 20040101
  4. DURAGESIC-100 [Concomitant]
     Indication: PAIN
     Dosage: 100 MG, OTHER
     Route: 062
     Dates: start: 20010101
  5. ELTROXIN [Concomitant]
     Indication: ANXIETY
     Dosage: 0.05 MG, DAILY (1/D)
     Route: 048
     Dates: start: 20040101
  6. GABAPENTIN [Concomitant]
     Indication: NEURALGIA
     Dosage: 300 MG, OTHER
     Route: 048
     Dates: start: 20040101
  7. HYDROMORPHONE HYDROCHLORIDE [Concomitant]
     Indication: PAIN
     Dosage: 6 MG, OTHER
     Route: 058
     Dates: start: 20040101
  8. METOPROLOL SUCCINATE [Concomitant]
     Indication: STOMACH DISCOMFORT
     Dosage: 0.5 D/F, UNK
     Dates: start: 20040101
  9. PAMIDRONATE DISODIUM [Concomitant]
     Indication: BONE DENSITY DECREASED
     Dosage: UNK, MONTHLY (1/M)
     Dates: start: 20040101
  10. PREVACID [Concomitant]
     Indication: BLOOD CHOLESTEROL
     Dosage: 10 MG, 3/D
     Route: 048
     Dates: start: 20040101
  11. SANDOSTATIN [Concomitant]
     Indication: DIARRHOEA
     Dosage: 30 MG, MONTHLY (1/M)
     Route: 058
     Dates: start: 20040101
  12. VENLAFAXINE HCL [Concomitant]
     Dosage: 37.5 MG, DAILY (1/D)
     Route: 048
     Dates: start: 20040101
  13. WARFARIN SODIUM [Concomitant]
     Indication: ANTICOAGULANT THERAPY
     Dosage: UNK MG, DAILY (1/D)
     Route: 048
     Dates: start: 20040101, end: 20070101

REACTIONS (2)
  - BLOOD GLUCOSE INCREASED [None]
  - INFECTION [None]
